FAERS Safety Report 7701102-4 (Version None)
Quarter: 2011Q3

REPORT INFORMATION
  Report Type: 
  Country: None (occurrence: None)
  Receive Date: 20110822
  Receipt Date: 20110809
  Transmission Date: 20111222
  Serious: Yes (Hospitalization)
  Sender: FDA-Public Use
  Company Number: US-CELGENEUS-163-21660-11081390

PATIENT
  Sex: Male
  Weight: 107.1 kg

DRUGS (19)
  1. ABRAXANE [Suspect]
     Indication: HEAD AND NECK CANCER
     Dosage: 50 MILLIGRAM/SQ. METER
     Route: 065
     Dates: start: 20110620, end: 20110801
  2. CARBOPLATIN [Suspect]
     Indication: HEAD AND NECK CANCER
     Dosage: AUC OF 1.5
     Route: 041
     Dates: start: 20110620, end: 20110801
  3. DIFLUCAN [Concomitant]
     Route: 065
  4. LORAZEPAM [Concomitant]
     Route: 065
  5. RITALIN [Concomitant]
     Route: 065
  6. SEROQUEL [Concomitant]
     Route: 065
  7. ATENOLOL [Concomitant]
     Route: 065
  8. MBL MOUTHWASH [Concomitant]
     Route: 048
  9. SIMAVASTATIN [Concomitant]
     Route: 065
  10. REGLAN [Concomitant]
     Route: 065
  11. DILAUDID [Concomitant]
     Route: 037
  12. METHADONE HYDROCHLORIDE [Concomitant]
     Route: 048
  13. ONDANSETRON [Concomitant]
     Route: 065
  14. OXYCODONE HCL [Concomitant]
     Dosage: 120 MILLIGRAM
     Route: 065
  15. SENNA [Concomitant]
     Route: 065
  16. SERZONE [Concomitant]
     Route: 065
  17. ALKALOL [Concomitant]
     Route: 065
  18. COLACE [Concomitant]
     Route: 065
  19. MIRTAZAPINE [Concomitant]
     Route: 065

REACTIONS (4)
  - ORAL PAIN [None]
  - CONFUSIONAL STATE [None]
  - FAILURE TO THRIVE [None]
  - DEHYDRATION [None]
